FAERS Safety Report 12719929 (Version 4)
Quarter: 2020Q1

REPORT INFORMATION
  Report Type: Spontaneous
  Country: US (occurrence: US)
  Receive Date: 20160907
  Receipt Date: 20200121
  Transmission Date: 20200409
  Serious: Yes (Other)
  Sender: FDA-Public Use
  Company Number: US-JNJFOC-20150824346

PATIENT
  Age: 52 Year
  Sex: Female

DRUGS (4)
  1. LEVAQUIN [Suspect]
     Active Substance: LEVOFLOXACIN
     Indication: INFLUENZA
     Route: 048
     Dates: start: 20051201
  2. LEVAQUIN [Suspect]
     Active Substance: LEVOFLOXACIN
     Indication: NASOPHARYNGITIS
     Route: 048
     Dates: start: 20051219, end: 20051229
  3. LEVAQUIN [Suspect]
     Active Substance: LEVOFLOXACIN
     Route: 048
     Dates: start: 20060215, end: 20060302
  4. LEVAQUIN [Suspect]
     Active Substance: LEVOFLOXACIN
     Route: 048
     Dates: start: 20110131, end: 20110214

REACTIONS (6)
  - Depression [Unknown]
  - Neuropathy peripheral [Not Recovered/Not Resolved]
  - Tendon rupture [Unknown]
  - Anxiety [Unknown]
  - Nerve injury [Unknown]
  - Insomnia [Unknown]

NARRATIVE: CASE EVENT DATE: 200512
